FAERS Safety Report 17485631 (Version 1)
Quarter: 2020Q1

REPORT INFORMATION
  Report Type: Spontaneous
  Country: US (occurrence: US)
  Receive Date: 20200302
  Receipt Date: 20200302
  Transmission Date: 20200409
  Serious: No
  Sender: FDA-Public Use
  Company Number: US-SA-2020SA053677

PATIENT
  Age: 33 Year
  Sex: Female

DRUGS (5)
  1. MESALAMINE. [Concomitant]
     Active Substance: MESALAMINE
  2. DUPIXENT [Suspect]
     Active Substance: DUPILUMAB
     Indication: DERMATITIS ATOPIC
     Dosage: 600 MG, 1X
     Route: 058
     Dates: start: 20200207, end: 20200207
  3. MELOXICAM. [Concomitant]
     Active Substance: MELOXICAM
  4. LEVOTHYROXIN [Concomitant]
     Active Substance: LEVOTHYROXINE
  5. JUNEL FE 24 [Concomitant]
     Active Substance: ETHINYL ESTRADIOL\NORETHINDRONE ACETATE

REACTIONS (1)
  - Injection site reaction [Not Recovered/Not Resolved]
